FAERS Safety Report 14340888 (Version 2)
Quarter: 2018Q3

REPORT INFORMATION
  Report Type: Spontaneous
  Country: MY (occurrence: MY)
  Receive Date: 20180102
  Receipt Date: 20180727
  Transmission Date: 20181010
  Serious: Yes (Other)
  Sender: FDA-Public Use
  Company Number: MY-SUN PHARMACEUTICAL INDUSTRIES LTD-2017R3-157982

PATIENT
  Age: 58 Year
  Sex: Female

DRUGS (1)
  1. CERUVIN [Suspect]
     Active Substance: CLOPIDOGREL BISULFATE
     Indication: ACUTE CORONARY SYNDROME
     Route: 048

REACTIONS (2)
  - Periorbital haematoma [Recovering/Resolving]
  - Conjunctival haemorrhage [Recovering/Resolving]
